FAERS Safety Report 5235731-7 (Version None)
Quarter: 2007Q1

REPORT INFORMATION
  Report Type: 
  Country: None (occurrence: None)
  Receive Date: 20061208
  Receipt Date: 20051129
  Transmission Date: 20070707
  Serious: Yes (Other)
  Sender: FDA-Public Use
  Company Number: 2005UW17987

PATIENT
  Age: 53 Year
  Sex: Female
  Weight: 68.38 kg

DRUGS (5)
  1. CRESTOR [Suspect]
     Indication: BLOOD CHOLESTEROL INCREASED
     Dosage: 10 MG DAILY PO
     Route: 048
     Dates: start: 20041101
  2. ZOLOFT [Concomitant]
  3. TRAZODONE HCL [Concomitant]
  4. ASPIRIN [Concomitant]
  5. M.V.I. [Concomitant]

REACTIONS (5)
  - CHILLS [None]
  - FATIGUE [None]
  - INFLUENZA LIKE ILLNESS [None]
  - MUSCULAR WEAKNESS [None]
  - MYALGIA [None]
